FAERS Safety Report 7504047-8 (Version None)
Quarter: 2011Q2

REPORT INFORMATION
  Report Type: 
  Country: None (occurrence: None)
  Receive Date: 20110525
  Receipt Date: 20110513
  Transmission Date: 20111010
  Serious: Yes (Other)
  Sender: FDA-Public Use
  Company Number: PHHY2011US23573

PATIENT
  Sex: Male

DRUGS (2)
  1. EXJADE [Suspect]
     Indication: APLASTIC ANAEMIA
     Dosage: 500 MG, BID
     Route: 048
     Dates: end: 20110310
  2. STEROIDS [Concomitant]

REACTIONS (7)
  - DYSPEPSIA [None]
  - ABDOMINAL PAIN [None]
  - HAEMATOCHEZIA [None]
  - VOMITING [None]
  - NAUSEA [None]
  - ABDOMINAL PAIN UPPER [None]
  - DIARRHOEA [None]
